FAERS Safety Report 6675035-9 (Version None)
Quarter: 2010Q2

REPORT INFORMATION
  Report Type: 
  Country: None (occurrence: None)
  Receive Date: 20100409
  Receipt Date: 20100407
  Transmission Date: 20101027
  Serious: Yes (Death, Hospitalization)
  Sender: FDA-Public Use
  Company Number: US-MERCK-1001USA03811

PATIENT
  Age: 54 Year
  Sex: Female

DRUGS (1)
  1. FOSAMAX [Suspect]
     Indication: OSTEOPOROSIS
     Route: 048
     Dates: end: 20080101

REACTIONS (10)
  - ANXIETY [None]
  - DENTAL CARIES [None]
  - DEPRESSION [None]
  - DRUG TOXICITY [None]
  - GALLBLADDER DISORDER [None]
  - IMPAIRED HEALING [None]
  - OSTEOMYELITIS [None]
  - OSTEONECROSIS [None]
  - STOMATITIS [None]
  - TOOTH ABSCESS [None]
